FAERS Safety Report 20872839 (Version 1)
Quarter: 2022Q2

REPORT INFORMATION
  Report Type: Spontaneous
  Country: AU (occurrence: AU)
  Receive Date: 20220525
  Receipt Date: 20220525
  Transmission Date: 20220721
  Serious: Yes (Other)
  Sender: FDA-Public Use
  Company Number: AU-TEVA-2022-AU-2038948

PATIENT
  Age: 55 Year
  Sex: Female

DRUGS (3)
  1. QUETIAPINE [Suspect]
     Active Substance: QUETIAPINE
     Indication: Depression
     Route: 065
  2. VALDOXAN [Suspect]
     Active Substance: AGOMELATINE
     Indication: Depression
     Route: 065
  3. PAROXETINE [Suspect]
     Active Substance: PAROXETINE
     Indication: Depression
     Route: 065

REACTIONS (1)
  - Breast cancer stage IV [Unknown]
